FAERS Safety Report 18512392 (Version 1)
Quarter: 2020Q4

REPORT INFORMATION
  Report Type: Other
  Country: US (occurrence: MX)
  Receive Date: 20201117
  Receipt Date: 20201117
  Transmission Date: 20210114
  Serious: Yes (Hospitalization)
  Sender: FDA-Public Use
  Company Number: MX-XGEN PHARMACEUTICALS DJB, INC.-2096020

PATIENT
  Age: 4 Year
  Weight: 18 kg

DRUGS (1)
  1. CLONIDINE HYDROCHLORIDE. [Suspect]
     Active Substance: CLONIDINE HYDROCHLORIDE

REACTIONS (1)
  - Bradycardia [Recovered/Resolved]
